FAERS Safety Report 24447259 (Version 1)
Quarter: 2024Q4

REPORT INFORMATION
  Report Type: Spontaneous
  Country: US (occurrence: US)
  Receive Date: 20241016
  Receipt Date: 20241016
  Transmission Date: 20250115
  Serious: No
  Sender: SANOFI AVENTIS
  Company Number: US-SANOFI-02243036

PATIENT
  Age: 79 Year
  Sex: Male
  Weight: 84.09 kg

DRUGS (9)
  1. DUPIXENT [Suspect]
     Active Substance: DUPILUMAB
     Indication: Illness
     Dosage: 300 MG, QOW
     Route: 058
     Dates: start: 20240814
  2. SIMVASTATIN [Concomitant]
     Active Substance: SIMVASTATIN
  3. PRIMIDONE [Concomitant]
     Active Substance: PRIMIDONE
  4. MINOCYCLINE HYDROCHLORIDE [Concomitant]
     Active Substance: MINOCYCLINE HYDROCHLORIDE
  5. PREDNISONE [Concomitant]
     Active Substance: PREDNISONE
  6. FLONASE ALLERGY RELIEF [Concomitant]
     Active Substance: FLUTICASONE PROPIONATE
  7. DEXTRIN\WHEAT [Interacting]
     Active Substance: ICODEXTRIN\WHEAT
  8. VITAMIN D3 [Concomitant]
     Active Substance: CHOLECALCIFEROL
  9. PEPCID [Concomitant]
     Active Substance: FAMOTIDINE

REACTIONS (2)
  - Trigeminal neuralgia [Not Recovered/Not Resolved]
  - Pain of skin [Not Recovered/Not Resolved]

NARRATIVE: CASE EVENT DATE: 20240101
